FAERS Safety Report 15656548 (Version 2)
Quarter: 2020Q3

REPORT INFORMATION
  Report Type: Spontaneous
  Country: US (occurrence: US)
  Receive Date: 20181126
  Receipt Date: 20200831
  Transmission Date: 20201102
  Serious: Yes (Other)
  Sender: FDA-Public Use
  Company Number: US-GILEAD-2018-0376055

PATIENT
  Age: 48 Year
  Sex: Male
  Weight: 87.08 kg

DRUGS (70)
  1. AMLODIPINE BESYLATE. [Concomitant]
     Active Substance: AMLODIPINE BESYLATE
  2. HYDROCODONE BITARTRATE AND ACETAMINOPHEN [Concomitant]
     Active Substance: ACETAMINOPHEN\HYDROCODONE BITARTRATE
  3. LEVEMIR [Concomitant]
     Active Substance: INSULIN DETEMIR
  4. LIPITOR [Concomitant]
     Active Substance: ATORVASTATIN CALCIUM
  5. LISINOPRIL. [Concomitant]
     Active Substance: LISINOPRIL
  6. OMEPRAZOLE. [Concomitant]
     Active Substance: OMEPRAZOLE
  7. PREDNISONE. [Concomitant]
     Active Substance: PREDNISONE
  8. ROBAXIN [Concomitant]
     Active Substance: METHOCARBAMOL
  9. TRULICITY [Concomitant]
     Active Substance: DULAGLUTIDE
  10. TRUVADA [Suspect]
     Active Substance: EMTRICITABINE\TENOFOVIR DISOPROXIL FUMARATE
     Indication: HIV INFECTION
     Dosage: UNK
     Route: 048
     Dates: end: 2017
  11. ATRIPLA [Suspect]
     Active Substance: EFAVIRENZ\EMTRICITABINE\TENOFOVIR DISOPROXIL FUMARATE
     Indication: HIV INFECTION
     Dosage: UNK
     Route: 048
     Dates: end: 2017
  12. STRIBILD [Suspect]
     Active Substance: COBICISTAT\ELVITEGRAVIR\EMTRICITABINE\TENOFOVIR DISOPROXIL FUMARATE
     Dosage: UNK
     Route: 048
     Dates: start: 20140811, end: 201505
  13. NORVIR [Concomitant]
     Active Substance: RITONAVIR
  14. BENZONATATE. [Concomitant]
     Active Substance: BENZONATATE
  15. CHERATUSSIN [Concomitant]
     Active Substance: AMMONIUM CHLORIDE\DEXTROMETHORPHAN\SODIUM CITRATE
  16. CLARITHROMYCIN. [Concomitant]
     Active Substance: CLARITHROMYCIN
  17. DICLOFEN [DICLOFENAC SODIUM] [Concomitant]
  18. FLUOXETINE [Concomitant]
     Active Substance: FLUOXETINE HYDROCHLORIDE
  19. IBUPROFEN. [Concomitant]
     Active Substance: IBUPROFEN
  20. LEVOFLOXACIN. [Concomitant]
     Active Substance: LEVOFLOXACIN
  21. MINOCYCLINE [Concomitant]
     Active Substance: MINOCYCLINE HYDROCHLORIDE
  22. POTASSIUM CHLORIDE. [Concomitant]
     Active Substance: POTASSIUM CHLORIDE
  23. ROSUVASTATIN. [Concomitant]
     Active Substance: ROSUVASTATIN
  24. TIZANIDINE HYDROCHLORIDE. [Concomitant]
     Active Substance: TIZANIDINE HYDROCHLORIDE
  25. TRUVADA [Suspect]
     Active Substance: EMTRICITABINE\TENOFOVIR DISOPROXIL FUMARATE
     Dosage: UNK
     Route: 048
     Dates: start: 20131025, end: 2014
  26. ISENTRESS [Concomitant]
     Active Substance: RALTEGRAVIR POTASSIUM
  27. PREZISTA [Concomitant]
     Active Substance: DARUNAVIR ETHANOLATE
  28. CEFDINIR. [Concomitant]
     Active Substance: CEFDINIR
  29. CEPHALEXIN [CEFALEXIN] [Concomitant]
     Active Substance: CEPHALEXIN
  30. ERGOCALCIFEROL. [Concomitant]
     Active Substance: ERGOCALCIFEROL
  31. INVOKANA [Concomitant]
     Active Substance: CANAGLIFLOZIN
  32. NYSTATIN. [Concomitant]
     Active Substance: NYSTATIN
  33. OSELTAMIVIRI PHOSPHAS [Concomitant]
  34. PROMETHAZINE [Concomitant]
     Active Substance: PROMETHAZINE HYDROCHLORIDE
  35. VENTOLIN HFA [Concomitant]
     Active Substance: ALBUTEROL SULFATE
  36. VIRTUSSIN AC [Concomitant]
     Active Substance: CODEINE PHOSPHATE\GUAIFENESIN
  37. GABAPENTIN. [Concomitant]
     Active Substance: GABAPENTIN
  38. LOSARTAN POTASSIUM. [Concomitant]
     Active Substance: LOSARTAN POTASSIUM
  39. METHOCARBAMOL. [Concomitant]
     Active Substance: METHOCARBAMOL
  40. GENVOYA [Concomitant]
     Active Substance: COBICISTAT\ELVITEGRAVIR\EMTRICITABINE\TENOFOVIR ALAFENAMIDE FUMARATE
  41. AMOXICILLIN. [Concomitant]
     Active Substance: AMOXICILLIN
  42. AZITHROMYCIN ANHYDROUS. [Concomitant]
     Active Substance: AZITHROMYCIN ANHYDROUS
  43. DIAZEPAM. [Concomitant]
     Active Substance: DIAZEPAM
  44. LYRICA [Concomitant]
     Active Substance: PREGABALIN
  45. RANITIDINE. [Concomitant]
     Active Substance: RANITIDINE
  46. VALSARTAN. [Concomitant]
     Active Substance: VALSARTAN
  47. STRIBILD [Suspect]
     Active Substance: COBICISTAT\ELVITEGRAVIR\EMTRICITABINE\TENOFOVIR DISOPROXIL FUMARATE
     Indication: HIV INFECTION
     Dosage: UNK
     Route: 048
     Dates: end: 2017
  48. ABACAVIR AND LAMIVUDINE [Concomitant]
     Active Substance: ABACAVIR SULFATE\LAMIVUDINE
  49. BACLOFEN. [Concomitant]
     Active Substance: BACLOFEN
  50. CRESTOR [Concomitant]
     Active Substance: ROSUVASTATIN CALCIUM
  51. LISINOPRIL + HIDROCLOROTIAZIDA [Concomitant]
     Active Substance: HYDROCHLOROTHIAZIDE\LISINOPRIL
  52. METFORMIN HYDROCHLORIDE. [Concomitant]
     Active Substance: METFORMIN HYDROCHLORIDE
  53. PROAIR HFA [Concomitant]
     Active Substance: ALBUTEROL SULFATE
  54. ATORVASTATIN [Concomitant]
     Active Substance: ATORVASTATIN
  55. BISACODYL. [Concomitant]
     Active Substance: BISACODYL
  56. DOXYCYCLINE. [Concomitant]
     Active Substance: DOXYCYCLINE
  57. FLUCONAZOLE. [Concomitant]
     Active Substance: FLUCONAZOLE
  58. GLIPIZIDE. [Concomitant]
     Active Substance: GLIPIZIDE
  59. LORAZEPAM. [Concomitant]
     Active Substance: LORAZEPAM
  60. MELOXICAM. [Concomitant]
     Active Substance: MELOXICAM
  61. NOVOLOG [Concomitant]
     Active Substance: INSULIN ASPART
  62. ONDANSETRON [Concomitant]
     Active Substance: ONDANSETRON
  63. HYDROCHLOROTHIAZIDE. [Concomitant]
     Active Substance: HYDROCHLOROTHIAZIDE
  64. EPZICOM [Concomitant]
     Active Substance: ABACAVIR SULFATE\LAMIVUDINE
  65. CYCLOBENZAPRIN [Concomitant]
     Active Substance: CYCLOBENZAPRINE
  66. FAMOTIDINE. [Concomitant]
     Active Substance: FAMOTIDINE
  67. HYDROXYZINE HCL [Concomitant]
     Active Substance: HYDROXYZINE HYDROCHLORIDE
  68. NAPROXEN. [Concomitant]
     Active Substance: NAPROXEN
  69. TAMIFLU [Concomitant]
     Active Substance: OSELTAMIVIR PHOSPHATE
  70. VIAGRA [SILDENAFIL CITRATE] [Concomitant]

REACTIONS (13)
  - Bone density decreased [Unknown]
  - Economic problem [Unknown]
  - Depression [Not Recovered/Not Resolved]
  - Emotional distress [Not Recovered/Not Resolved]
  - Intervertebral disc degeneration [Recovered/Resolved]
  - Intervertebral disc degeneration [Recovered/Resolved]
  - Osteoarthritis [Not Recovered/Not Resolved]
  - Anxiety [Not Recovered/Not Resolved]
  - Osteoporosis [Unknown]
  - Pain [Not Recovered/Not Resolved]
  - Chronic kidney disease [Not Recovered/Not Resolved]
  - Anhedonia [Not Recovered/Not Resolved]
  - Vitamin D deficiency [Not Recovered/Not Resolved]

NARRATIVE: CASE EVENT DATE: 20140619
